FAERS Safety Report 6801062-4 (Version None)
Quarter: 2010Q2

REPORT INFORMATION
  Report Type: 
  Country: None (occurrence: None)
  Receive Date: 20100624
  Receipt Date: 20100609
  Transmission Date: 20101027
  Serious: Yes (Hospitalization)
  Sender: FDA-Public Use
  Company Number: 2010001493

PATIENT
  Age: 65 Year
  Sex: Male

DRUGS (16)
  1. ERLOTINIB (ERLOTINIB) (TABLET) (ERLOTINIB) [Suspect]
     Indication: NON-SMALL CELL LUNG CANCER
     Dosage: (QD), ORAL
     Route: 048
     Dates: start: 20100303
  2. DEXAMETHASONE [Concomitant]
  3. FUROSEMIDE [Concomitant]
  4. CLOTRIMAZOLE [Concomitant]
  5. AMOXICILLIN [Concomitant]
  6. ZOPICLONE (ZOPICLONE) [Concomitant]
  7. RANITIDINE [Concomitant]
  8. OMEPRAZOLE [Concomitant]
  9. ALLOPURINOL [Concomitant]
  10. SIMVASTATIN [Concomitant]
  11. RAMIPRIL [Concomitant]
  12. THIAMIN CHLORIDE TAB [Concomitant]
  13. INTRAVENOUS SOLUTION NOS/POTASSIUM [Concomitant]
  14. ACETAMINOPHEN [Concomitant]
  15. LOPERAMIDE (LOPERAMIDE) [Concomitant]
  16. SANDO-K (POTASSIUM BICARBONATE) [Concomitant]

REACTIONS (1)
  - CONVULSION [None]
